FAERS Safety Report 7640087-6 (Version None)
Quarter: 2011Q3

REPORT INFORMATION
  Report Type: 
  Country: None (occurrence: None)
  Receive Date: 20110727
  Receipt Date: 20110714
  Transmission Date: 20111222
  Serious: Yes (Hospitalization)
  Sender: FDA-Public Use
  Company Number: US-ELI_LILLY_AND_COMPANY-US201106001800

PATIENT
  Age: 62 Year
  Sex: Female

DRUGS (5)
  1. VITAMIN B-12 [Concomitant]
  2. VALIUM [Concomitant]
     Indication: DEPRESSION
     Dosage: 5 MG, UNK
  3. FORTEO [Suspect]
     Dosage: 20 UG, QD
  4. FORTEO [Suspect]
     Dosage: 20 UG, QD
  5. FORTEO [Suspect]
     Indication: OSTEOPOROSIS
     Dosage: 20 UG, QD
     Dates: start: 20110531

REACTIONS (11)
  - BONE DISORDER [None]
  - BONE PAIN [None]
  - ABDOMINAL PAIN [None]
  - FATIGUE [None]
  - CONTUSION [None]
  - ABDOMINAL PAIN UPPER [None]
  - HOSPITALISATION [None]
  - DYSPNOEA [None]
  - HERNIA [None]
  - ARTHRALGIA [None]
  - PAIN IN EXTREMITY [None]
